FAERS Safety Report 14239551 (Version 1)
Quarter: 2017Q4

REPORT INFORMATION
  Report Type: Report from Study
  Country: US (occurrence: US)
  Receive Date: 20171130
  Receipt Date: 20171130
  Transmission Date: 20180321
  Serious: Yes (Other)
  Sender: FDA-Public Use
  Company Number: US-MYLANLABS-2017M1074844

PATIENT

DRUGS (1)
  1. ETOMIDATE. [Suspect]
     Active Substance: ETOMIDATE
     Indication: SEDATIVE THERAPY
     Dosage: 10MG
     Route: 050

REACTIONS (1)
  - Hypoxia [Unknown]
